FAERS Safety Report 9097518 (Version 1)
Quarter: 2013Q1

REPORT INFORMATION
  Report Type: Spontaneous
  Country: GR (occurrence: GR)
  Receive Date: 20130212
  Receipt Date: 20130212
  Transmission Date: 20140127
  Serious: Yes (Hospitalization)
  Sender: FDA-Public Use
  Company Number: PHHY2013GR013405

PATIENT
  Sex: 0

DRUGS (2)
  1. TASIGNA [Suspect]
     Dosage: 200 MG, UNK
  2. TASIGNA [Suspect]
     Dosage: UNK

REACTIONS (3)
  - Pallor [Recovering/Resolving]
  - Hyponatraemia [Recovering/Resolving]
  - Hypertension [Recovering/Resolving]
